FAERS Safety Report 4707834-4 (Version None)
Quarter: 2005Q3

REPORT INFORMATION
  Report Type: 
  Country: None (occurrence: None)
  Receive Date: 20050705
  Receipt Date: 20050705
  Transmission Date: 20060218
  Serious: No
  Sender: FDA-Public Use
  Company Number: None

PATIENT
  Sex: Male
  Weight: 93 kg

DRUGS (15)
  1. SINEMET [Suspect]
     Indication: TREMOR
     Dosage: 10/100MG TAB  HS  ORAL
     Route: 048
     Dates: start: 20050125, end: 20050128
  2. ORAMORPH SR [Concomitant]
  3. GLYBURIDE [Concomitant]
  4. NTG SL [Concomitant]
  5. ZOLADEX [Concomitant]
  6. ALBUTEROL [Concomitant]
  7. DURAGESIC-100 [Concomitant]
  8. REMERON [Concomitant]
  9. PROZAC [Concomitant]
  10. PRILOSEC [Concomitant]
  11. LISINOPRIL [Concomitant]
  12. NEURONIN [Concomitant]
  13. ZYPREXA [Concomitant]
  14. DOCUSATE [Concomitant]
  15. LACTASE [Concomitant]

REACTIONS (1)
  - NIGHTMARE [None]
